FAERS Safety Report 10146497 (Version 2)
Quarter: 2014Q2

REPORT INFORMATION
  Report Type: Spontaneous
  Country: JP (occurrence: JP)
  Receive Date: 20140501
  Receipt Date: 20140523
  Transmission Date: 20141212
  Serious: Yes (Other)
  Sender: FDA-Public Use
  Company Number: JP-PFIZER INC-2014119460

PATIENT
  Age: 50 Year
  Sex: Male

DRUGS (4)
  1. JZOLOFT [Suspect]
     Dosage: 25 MG/DAY
     Route: 048
     Dates: start: 20140412, end: 20140416
  2. CRESTOR [Concomitant]
     Dosage: UNK
  3. PREMINENT [Concomitant]
     Dosage: UNK
  4. LIMARMONE [Concomitant]
     Dosage: UNK

REACTIONS (4)
  - Loss of consciousness [Recovered/Resolved]
  - Epilepsy [Unknown]
  - Arrhythmia [Unknown]
  - Road traffic accident [Unknown]
